FAERS Safety Report 8649568 (Version 2)
Quarter: 2012Q4

REPORT INFORMATION
  Report Type: 
  Country: US (occurrence: US)
  Receive Date: 20120705
  Receipt Date: 20120906
  Transmission Date: 20130627
  Serious: Yes (Other)
  Sender: FDA-Public Use
  Company Number: PHEH2012US012833

PATIENT
  Sex: Female

DRUGS (4)
  1. TEGRETOL [Suspect]
     Dosage: 100 mg, TID
  2. TEGRETOL [Suspect]
     Dosage: UNK UKN, UNK
  3. CARBAMAZEPINE [Suspect]
     Dosage: UNK UKN, UNK
  4. LAMICTAL [Concomitant]
     Dosage: UNK UKN, UNK

REACTIONS (7)
  - Convulsion [Unknown]
  - Grand mal convulsion [Unknown]
  - Tonic clonic movements [Unknown]
  - Muscle twitching [Unknown]
  - Excessive eye blinking [Unknown]
  - Staring [Unknown]
  - Wrong technique in drug usage process [Unknown]
